FAERS Safety Report 22344153 (Version 1)
Quarter: 2023Q2

REPORT INFORMATION
  Report Type: Spontaneous
  Country: US (occurrence: None)
  Receive Date: 20230518
  Receipt Date: 20230518
  Transmission Date: 20230722
  Serious: Yes (unspecified)
  Sender: FDA-Public Use
  Company Number: None

PATIENT
  Age: 4 Year
  Sex: Female
  Weight: 24.75 kg

DRUGS (2)
  1. OFLOXACIN OPHTHALMIC [Suspect]
     Active Substance: OFLOXACIN
     Indication: Conjunctivitis
     Dosage: OTHER QUANTITY : 5 ML;?FREQUENCY : TWICE A DAY;?
     Route: 047
     Dates: start: 20221217, end: 20221220
  2. Flovent Singulair [Concomitant]

REACTIONS (3)
  - Eye swelling [None]
  - Adverse reaction [None]
  - Recalled product administered [None]

NARRATIVE: CASE EVENT DATE: 20221220
